FAERS Safety Report 9740177 (Version 1)
Quarter: 2013Q4

REPORT INFORMATION
  Report Type: Spontaneous
  Country: US (occurrence: US)
  Receive Date: 20131209
  Receipt Date: 20131209
  Transmission Date: 20140711
  Serious: No
  Sender: FDA-Public Use
  Company Number: US-ROXANE LABORATORIES, INC.-2013-RO-01919RO

PATIENT
  Sex: Male

DRUGS (2)
  1. IRBESARTAN [Suspect]
     Route: 048
     Dates: start: 20131127
  2. DIAZEPAM [Concomitant]

REACTIONS (1)
  - Chromaturia [Unknown]
